FAERS Safety Report 8765574 (Version 6)
Quarter: 2013Q1

REPORT INFORMATION
  Report Type: Spontaneous
  Country: GB (occurrence: GB)
  Receive Date: 20120903
  Receipt Date: 20130320
  Transmission Date: 20140127
  Serious: Yes (Life-Threatening, Hospitalization, Other)
  Sender: FDA-Public Use
  Company Number: PHFR2011GB006697

PATIENT
  Age: 21 Year
  Sex: Male

DRUGS (1)
  1. CLOZARIL [Suspect]
     Indication: SCHIZOPHRENIA
     Dosage: UNK
     Route: 048
     Dates: start: 20111021, end: 20111121

REACTIONS (9)
  - Myopericarditis [Recovered/Resolved]
  - Chest pain [Unknown]
  - Cardiac enzymes increased [Unknown]
  - ECG signs of myocardial ischaemia [Unknown]
  - Troponin T increased [Recovered/Resolved]
  - Differential white blood cell count abnormal [Recovered/Resolved]
  - Psychotic disorder [Not Recovered/Not Resolved]
  - Eosinophil count increased [Recovered/Resolved]
  - White blood cell count increased [Recovered/Resolved]
